FAERS Safety Report 19727259 (Version 8)
Quarter: 2022Q2

REPORT INFORMATION
  Report Type: Report from Study
  Country: US (occurrence: US)
  Receive Date: 20210819
  Receipt Date: 20220412
  Transmission Date: 20220721
  Serious: Yes (Hospitalization, Other)
  Sender: FDA-Public Use
  Company Number: US-NOVARTISPH-NVSC2021US186592

PATIENT
  Age: 81 Year
  Sex: Male

DRUGS (2)
  1. ENTRESTO [Suspect]
     Active Substance: SACUBITRIL\VALSARTAN
     Indication: Product used for unknown indication
     Dosage: 50 MG (24/26 MG), BID
     Route: 048
     Dates: start: 20210804
  2. ENTRESTO [Suspect]
     Active Substance: SACUBITRIL\VALSARTAN
     Dosage: 100 MG  (49/51 MG) DOSE INCREASED
     Route: 048

REACTIONS (9)
  - Heart rate irregular [Recovered/Resolved]
  - Lung disorder [Recovering/Resolving]
  - Decreased activity [Recovering/Resolving]
  - Dizziness [Recovered/Resolved]
  - Nervousness [Not Recovered/Not Resolved]
  - Agitation [Recovering/Resolving]
  - Irritability [Unknown]
  - Peripheral coldness [Unknown]
  - Therapeutic response unexpected [Recovering/Resolving]

NARRATIVE: CASE EVENT DATE: 20210805
